FAERS Safety Report 5856828-4 (Version None)
Quarter: 2008Q3

REPORT INFORMATION
  Report Type: 
  Country: None (occurrence: None)
  Receive Date: 20080822
  Receipt Date: 20080822
  Transmission Date: 20090109
  Serious: Yes (Hospitalization)
  Sender: FDA-Public Use
  Company Number: None

PATIENT
  Sex: Male
  Weight: 100.3 kg

DRUGS (5)
  1. CYTARABINE [Suspect]
     Dosage: 1582 MG
  2. DAUNORUBICIN HCL [Suspect]
     Dosage: 305.1 MG
  3. FLAGYL [Concomitant]
  4. CMCSF [Concomitant]
  5. VANCOMYCIN HYDROCHLORIDE [Concomitant]

REACTIONS (4)
  - ASCITES [None]
  - CLOSTRIDIUM DIFFICILE COLITIS [None]
  - GASTROINTESTINAL DISORDER [None]
  - NEUTROPENIA [None]
